FAERS Safety Report 6407087-5 (Version None)
Quarter: 2009Q4

REPORT INFORMATION
  Report Type: 
  Country: None (occurrence: None)
  Receive Date: 20091020
  Receipt Date: 20091007
  Transmission Date: 20100525
  Serious: Yes (Congenital Anomaly)
  Sender: FDA-Public Use
  Company Number: GB-ROCHE-658530

PATIENT
  Sex: Male
  Weight: 2.7 kg

DRUGS (10)
  1. INVIRASE [Suspect]
     Indication: HIV INFECTION
     Route: 064
     Dates: start: 20060411
  2. COMBIVIR [Suspect]
     Indication: HIV INFECTION
     Dosage: DOSE REPORTED 2DF
     Route: 064
     Dates: start: 20060411
  3. EPZICOM [Suspect]
     Indication: HIV INFECTION
     Dosage: DOSE REPORTED 1DF
     Route: 064
     Dates: end: 20051225
  4. NORVIR [Suspect]
     Indication: HIV INFECTION
     Route: 064
     Dates: start: 20060411
  5. VIRAMUNE [Suspect]
     Indication: HIV INFECTION
     Route: 064
     Dates: end: 20051225
  6. SAQUINAVIR [Suspect]
     Indication: ANTIVIRAL TREATMENT
     Route: 064
  7. KIVEXA [Suspect]
     Indication: ANTIVIRAL TREATMENT
     Route: 064
  8. KIVEXA [Suspect]
     Route: 064
  9. NEVIRAPINE [Suspect]
     Indication: ANTIVIRAL TREATMENT
     Route: 064
  10. NEVIRAPINE [Suspect]
     Route: 064

REACTIONS (2)
  - CONGENITAL ANOMALY [None]
  - NORMAL NEWBORN [None]
